FAERS Safety Report 8370447-X (Version None)
Quarter: 2012Q2

REPORT INFORMATION
  Report Type: 
  Country: None (occurrence: None)
  Receive Date: 20120518
  Receipt Date: 20120507
  Transmission Date: 20120825
  Serious: Yes (Hospitalization, Other)
  Sender: FDA-Public Use
  Company Number: US-ELI_LILLY_AND_COMPANY-US201205003579

PATIENT
  Sex: Female

DRUGS (19)
  1. PROCRIT [Concomitant]
     Dosage: UNK
  2. NEXIUM [Concomitant]
     Dosage: UNK
  3. NITROSTAT [Concomitant]
     Dosage: UNK
  4. SODIUM BICARBONATE [Concomitant]
     Dosage: UNK
  5. LIPOFLAVONOID [Concomitant]
     Dosage: UNK
  6. COREG [Concomitant]
     Dosage: UNK
  7. MULTI-VITAMIN [Concomitant]
     Dosage: UNK UNK, QD
  8. ZOFRAN [Concomitant]
     Dosage: UNK
  9. FORTEO [Suspect]
     Indication: OSTEOPOROSIS
     Dosage: 20 DF, QD
     Dates: start: 20120303, end: 20120426
  10. CALCIUM + VITAMIN D [Concomitant]
     Dosage: UNK
  11. ASPIRIN [Concomitant]
     Dosage: UNK
  12. COSOPT [Concomitant]
     Dosage: UNK
  13. HYDROCODONE [Concomitant]
     Dosage: UNK
  14. CEFTIN [Concomitant]
     Dosage: UNK
  15. SENOKOT [Concomitant]
     Dosage: UNK
  16. GABAPENTIN [Concomitant]
     Dosage: UNK
  17. TYLENOL                                 /SCH/ [Concomitant]
     Dosage: UNK
  18. LACTINEX [Concomitant]
     Dosage: UNK
  19. AMBIEN [Concomitant]
     Dosage: UNK

REACTIONS (4)
  - RENAL FAILURE [None]
  - CHEST PAIN [None]
  - PLEURAL EFFUSION [None]
  - URINARY TRACT INFECTION [None]
